FAERS Safety Report 7826580-1 (Version None)
Quarter: 2011Q4

REPORT INFORMATION
  Report Type: 
  Country: None (occurrence: None)
  Receive Date: 20111020
  Receipt Date: 20111010
  Transmission Date: 20120403
  Serious: Yes (Hospitalization, Disabling)
  Sender: FDA-Public Use
  Company Number: US-ELI_LILLY_AND_COMPANY-US201110002593

PATIENT
  Sex: Female

DRUGS (3)
  1. ZYPREXA [Suspect]
     Dosage: 10 MG, UNK
     Dates: start: 20110401
  2. ZYPREXA [Suspect]
     Dosage: 10 MG, UNK
     Dates: start: 20110401
  3. ZYPREXA [Suspect]
     Indication: SCHIZOPHRENIA
     Dosage: UNK

REACTIONS (8)
  - SCHIZOPHRENIA [None]
  - ABASIA [None]
  - FLUID OVERLOAD [None]
  - OVERDOSE [None]
  - ELECTROLYTE IMBALANCE [None]
  - POOR PERIPHERAL CIRCULATION [None]
  - SCHIZOPHRENIFORM DISORDER [None]
  - HYPERSOMNIA [None]
